FAERS Safety Report 6921056-8 (Version None)
Quarter: 2010Q3

REPORT INFORMATION
  Report Type: 
  Country: None (occurrence: None)
  Receive Date: 20100812
  Receipt Date: 20100804
  Transmission Date: 20110219
  Serious: Yes (Hospitalization)
  Sender: FDA-Public Use
  Company Number: IT-ROCHE-719074

PATIENT
  Sex: Female

DRUGS (5)
  1. XELODA [Suspect]
     Dosage: FREQUENCY REPORTED AS DAILY
     Route: 048
     Dates: start: 20100601, end: 20100608
  2. NAVELBINE [Suspect]
     Dosage: FREQUENCY REPORTED AS CYCLE
     Route: 042
     Dates: start: 20100601, end: 20100603
  3. LEVOTHYROXINE [Concomitant]
     Indication: HYPOTHYROIDISM
     Dosage: FREQUENCY UNKNOWN
     Route: 048
  4. EXEMESTANE [Concomitant]
     Dosage: FREQUENCY REPORTED AS UNKNOWN
     Route: 048
     Dates: start: 20100626, end: 20100726
  5. FUROSEMIDE [Concomitant]
     Dosage: FREQUENCY REPORTED AS UNKNOWN
     Route: 048

REACTIONS (8)
  - ATRIAL FIBRILLATION [None]
  - DIARRHOEA [None]
  - ESCHERICHIA SEPSIS [None]
  - ILEUS PARALYTIC [None]
  - PANCYTOPENIA [None]
  - PROTEUS INFECTION [None]
  - SEPTIC SHOCK [None]
  - STAPHYLOCOCCAL SEPSIS [None]
